FAERS Safety Report 20871382 (Version 2)
Quarter: 2025Q3

REPORT INFORMATION
  Report Type: Spontaneous
  Country: EU (occurrence: EU)
  Receive Date: 20220525
  Receipt Date: 20250728
  Transmission Date: 20251020
  Serious: Yes (Hospitalization, Other)
  Sender: MYLAN
  Company Number: None

PATIENT
  Age: 22 Year
  Sex: Male
  Weight: 68 kg

DRUGS (12)
  1. MESALAMINE [Suspect]
     Active Substance: MESALAMINE
     Indication: Colitis ulcerative
     Dosage: 4800 MILLIGRAM, QD, 1600 MG THREE TIMES DAILY
     Dates: start: 20220412, end: 20220420
  2. MESALAMINE [Suspect]
     Active Substance: MESALAMINE
     Dosage: 4800 MILLIGRAM, QD, 1600 MG THREE TIMES DAILY
     Route: 048
     Dates: start: 20220412, end: 20220420
  3. MESALAMINE [Suspect]
     Active Substance: MESALAMINE
     Dosage: 4800 MILLIGRAM, QD, 1600 MG THREE TIMES DAILY
     Route: 048
     Dates: start: 20220412, end: 20220420
  4. MESALAMINE [Suspect]
     Active Substance: MESALAMINE
     Dosage: 4800 MILLIGRAM, QD, 1600 MG THREE TIMES DAILY
     Dates: start: 20220412, end: 20220420
  5. PREDNISONE [Concomitant]
     Active Substance: PREDNISONE
     Indication: Colitis ulcerative
     Dosage: 50 MILLIGRAM, Q2W, THEN REDUCED BY 5 MG EVERY WEEK UNTIL DISCONTINUED, 25.000 IU WEEKLY
     Dates: start: 20220412, end: 20220812
  6. PREDNISONE [Concomitant]
     Active Substance: PREDNISONE
     Dosage: 50 MILLIGRAM, Q2W, THEN REDUCED BY 5 MG EVERY WEEK UNTIL DISCONTINUED, 25.000 IU WEEKLY
     Route: 048
     Dates: start: 20220412, end: 20220812
  7. PREDNISONE [Concomitant]
     Active Substance: PREDNISONE
     Dosage: 50 MILLIGRAM, Q2W, THEN REDUCED BY 5 MG EVERY WEEK UNTIL DISCONTINUED, 25.000 IU WEEKLY
     Route: 048
     Dates: start: 20220412, end: 20220812
  8. PREDNISONE [Concomitant]
     Active Substance: PREDNISONE
     Dosage: 50 MILLIGRAM, Q2W, THEN REDUCED BY 5 MG EVERY WEEK UNTIL DISCONTINUED, 25.000 IU WEEKLY
     Dates: start: 20220412, end: 20220812
  9. Tredimin [Concomitant]
     Indication: Vitamin D deficiency
     Dosage: 25.000 IU WEEKLY, QW
     Dates: start: 20220412
  10. Tredimin [Concomitant]
     Dosage: 25.000 IU WEEKLY, QW
     Route: 048
     Dates: start: 20220412
  11. Tredimin [Concomitant]
     Dosage: 25.000 IU WEEKLY, QW
     Route: 048
     Dates: start: 20220412
  12. Tredimin [Concomitant]
     Dosage: 25.000 IU WEEKLY, QW
     Dates: start: 20220412

REACTIONS (2)
  - Chest pain [Recovering/Resolving]
  - Myocarditis [Recovered/Resolved]

NARRATIVE: CASE EVENT DATE: 20220420
